FAERS Safety Report 8461859-4 (Version None)
Quarter: 2012Q2

REPORT INFORMATION
  Report Type: 
  Country: None (occurrence: None)
  Receive Date: 20120618
  Receipt Date: 20120611
  Transmission Date: 20120825
  Serious: Yes (Other)
  Sender: FDA-Public Use
  Company Number: 2012MA007311

PATIENT
  Age: 28 Year
  Sex: Male

DRUGS (3)
  1. BECLOMETHASONE DIPROPIONATE [Concomitant]
  2. ERYTHROMYCIN [Concomitant]
  3. DOXYCYCLINE HYCLATE [Suspect]
     Indication: ACNE
     Dosage: PO
     Route: 048
     Dates: start: 20120426

REACTIONS (3)
  - SEXUAL DYSFUNCTION [None]
  - LIBIDO DECREASED [None]
  - ERECTILE DYSFUNCTION [None]
